FAERS Safety Report 15735821 (Version 1)
Quarter: 2018Q4

REPORT INFORMATION
  Report Type: Report from Study
  Country: DK (occurrence: DK)
  Receive Date: 20181218
  Receipt Date: 20181218
  Transmission Date: 20190205
  Serious: Yes (Death, Life-Threatening, Other)
  Sender: FDA-Public Use
  Company Number: DK-RECRO GAINESVILLE LLC-REPH-2018-000088

PATIENT
  Age: 76 Year
  Sex: Female

DRUGS (3)
  1. VERAPAMIL HYDROCHLORIDE SUSTAINED RELEASE [Suspect]
     Active Substance: VERAPAMIL HYDROCHLORIDE
     Dosage: UNK
  2. OXAZEPAM. [Concomitant]
     Active Substance: OXAZEPAM
     Dosage: UNK
  3. ACETAMINOPHEN. [Concomitant]
     Active Substance: ACETAMINOPHEN
     Dosage: UNK

REACTIONS (9)
  - Brain injury [Unknown]
  - Acute kidney injury [Unknown]
  - Acidosis [Unknown]
  - Intentional overdose [Fatal]
  - Bradycardia [Unknown]
  - Hypothermia [Unknown]
  - Cardiac arrest [Fatal]
  - Atrioventricular block complete [Unknown]
  - Hypotension [Unknown]
